FAERS Safety Report 12424552 (Version 1)
Quarter: 2016Q2

REPORT INFORMATION
  Report Type: Spontaneous
  Country: US (occurrence: US)
  Receive Date: 20160601
  Receipt Date: 20160601
  Transmission Date: 20160815
  Serious: No
  Sender: FDA-Public Use
  Company Number: US-NOVEN PHARMACEUTICALS, INC.-US2016000151

PATIENT

DRUGS (2)
  1. DAYTRANA [Suspect]
     Active Substance: METHYLPHENIDATE
     Indication: ATTENTION DEFICIT/HYPERACTIVITY DISORDER
     Dosage: 10 MG, UNKNOWN
     Route: 062
     Dates: start: 201508
  2. DAYTRANA [Suspect]
     Active Substance: METHYLPHENIDATE
     Dosage: CUTTING 10 MG PATCH INTO HALF AND USING WITH OTHER 10 MG PATCH, UNKNOWN
     Route: 062

REACTIONS (9)
  - Wrong technique in product usage process [Unknown]
  - Application site erosion [Unknown]
  - Application site urticaria [Unknown]
  - Application site erythema [Unknown]
  - Drug dose omission [Not Recovered/Not Resolved]
  - Application site irritation [Unknown]
  - Application site bruise [Unknown]
  - Application site scab [Recovering/Resolving]
  - Application site swelling [Unknown]

NARRATIVE: CASE EVENT DATE: 20160128
